FAERS Safety Report 10058679 (Version 3)
Quarter: 2014Q2

REPORT INFORMATION
  Report Type: Spontaneous
  Country: FR (occurrence: None)
  Receive Date: 20140402
  Receipt Date: 20140603
  Transmission Date: 20141212
  Serious: Yes (Other)
  Sender: FDA-Public Use
  Company Number: AXC-2014-000219

PATIENT
  Age: 24 Year
  Sex: Male

DRUGS (2)
  1. PYLERA [Suspect]
     Indication: HELICOBACTER INFECTION
     Route: 048
     Dates: start: 20140127, end: 201402
  2. INEXIUM (ESOMEPRAZOLE MAGNESIUM) (ESOMEPRAZOLE MAGNESIUM) [Concomitant]

REACTIONS (6)
  - Laryngitis [None]
  - Vocal cord inflammation [None]
  - Alanine aminotransferase increased [None]
  - Multiple allergies [None]
  - Gamma-glutamyltransferase increased [None]
  - Off label use [None]
